FAERS Safety Report 16901802 (Version 2)
Quarter: 2019Q4

REPORT INFORMATION
  Report Type: Spontaneous
  Country: DE (occurrence: DE)
  Receive Date: 20191010
  Receipt Date: 20191211
  Transmission Date: 20200122
  Serious: Yes (Other)
  Sender: FDA-Public Use
  Company Number: DE-SUN PHARMACEUTICAL INDUSTRIES LTD-2019RR-223202

PATIENT
  Age: 59 Year
  Sex: Male
  Weight: 53 kg

DRUGS (2)
  1. RANITIDINE. [Suspect]
     Active Substance: RANITIDINE
     Dosage: 1X ABENDS
     Route: 048
     Dates: start: 20190226, end: 20190307
  2. RANITIDINE. [Suspect]
     Active Substance: RANITIDINE
     Indication: DYSPEPSIA
     Dosage: 1X ABENDS
     Route: 048
     Dates: start: 20190315

REACTIONS (8)
  - Cold sweat [Unknown]
  - Pruritus [Unknown]
  - Middle insomnia [Recovered/Resolved]
  - Disorientation [Unknown]
  - Fatigue [Unknown]
  - Initial insomnia [Recovered/Resolved]
  - Adverse reaction [Unknown]
  - Malaise [Unknown]

NARRATIVE: CASE EVENT DATE: 2019
